FAERS Safety Report 13670731 (Version 1)
Quarter: 2017Q2

REPORT INFORMATION
  Report Type: Spontaneous
  Country: US (occurrence: US)
  Receive Date: 20170620
  Receipt Date: 20170620
  Transmission Date: 20170830
  Serious: No
  Sender: FDA-Public Use
  Company Number: US-ROCHE-1204246

PATIENT
  Age: 44 Year
  Sex: Female

DRUGS (14)
  1. CAPECITABINE. [Suspect]
     Active Substance: CAPECITABINE
     Indication: BREAST CANCER METASTATIC
     Route: 065
  2. VENLAFAXINE [Concomitant]
     Active Substance: VENLAFAXINE HYDROCHLORIDE
     Route: 065
  3. TRASTUZUMAB [Concomitant]
     Active Substance: TRASTUZUMAB
     Route: 065
  4. IXABEPILONE [Concomitant]
     Active Substance: IXABEPILONE
     Route: 065
     Dates: start: 20100811
  5. VENLAFAXINE [Concomitant]
     Active Substance: VENLAFAXINE HYDROCHLORIDE
     Route: 065
  6. LAPATINIB [Suspect]
     Active Substance: LAPATINIB
     Indication: BREAST CANCER METASTATIC
     Route: 065
  7. GEMCITABINE [Concomitant]
     Active Substance: GEMCITABINE\GEMCITABINE HYDROCHLORIDE
  8. NAB-PACLITAXEL [Concomitant]
     Active Substance: PACLITAXEL
  9. IXABEPILONE [Concomitant]
     Active Substance: IXABEPILONE
     Dosage: ON DAYS 1 AND 8 OF 21 DAY CYCLE
     Route: 065
     Dates: start: 20101006
  10. CARBOPLATIN. [Concomitant]
     Active Substance: CARBOPLATIN
  11. IXABEPILONE [Concomitant]
     Active Substance: IXABEPILONE
     Route: 065
     Dates: start: 20100719
  12. DOCETAXEL. [Concomitant]
     Active Substance: DOCETAXEL
  13. BEVACIZUMAB [Concomitant]
     Active Substance: BEVACIZUMAB
  14. ZOLEDRONIC ACID [Concomitant]
     Active Substance: ZOLEDRONIC ACID
     Dosage: EVERY 6-8 WEEKS
     Route: 065
     Dates: start: 201002

REACTIONS (2)
  - Palmar-plantar erythrodysaesthesia syndrome [Unknown]
  - Diarrhoea [Unknown]
